FAERS Safety Report 4438043-4 (Version None)
Quarter: 2004Q3

REPORT INFORMATION
  Report Type: 
  Country: None (occurrence: None)
  Receive Date: 20040831
  Receipt Date: 20040511
  Transmission Date: 20050211
  Serious: No
  Sender: FDA-Public Use
  Company Number: US-GLAXOSMITHKLINE-A0510419A

PATIENT
  Age: 36 Year
  Sex: Female

DRUGS (5)
  1. WELLBUTRIN [Suspect]
     Indication: ILL-DEFINED DISORDER
     Dosage: 300MG PER DAY
     Route: 048
     Dates: start: 20040427
  2. ZOLOFT [Concomitant]
  3. AMBIEN [Concomitant]
  4. XANAX [Concomitant]
  5. SEROQUEL [Concomitant]

REACTIONS (5)
  - HYPERAESTHESIA [None]
  - LYMPHADENOPATHY [None]
  - PYREXIA [None]
  - SWELLING FACE [None]
  - SWOLLEN TONGUE [None]
